FAERS Safety Report 24254237 (Version 1)
Quarter: 2024Q3

REPORT INFORMATION
  Report Type: Spontaneous
  Country: DE (occurrence: DE)
  Receive Date: 20240827
  Receipt Date: 20240827
  Transmission Date: 20241016
  Serious: Yes (Life-Threatening, Other)
  Sender: PFIZER
  Company Number: None

PATIENT
  Age: 56 Year
  Sex: Male
  Weight: 72 kg

DRUGS (1)
  1. VYNDAQEL [Suspect]
     Active Substance: TAFAMIDIS MEGLUMINE
     Indication: Cardiac amyloidosis
     Dosage: 61 MG, 1X/DAY
     Route: 048
     Dates: start: 202403, end: 20240814

REACTIONS (3)
  - Acute hepatic failure [Not Recovered/Not Resolved]
  - Hepatitis acute [Not Recovered/Not Resolved]
  - Malaise [Unknown]

NARRATIVE: CASE EVENT DATE: 20240801
